FAERS Safety Report 5902284-7 (Version None)
Quarter: 2008Q3

REPORT INFORMATION
  Report Type: 
  Country: None (occurrence: None)
  Receive Date: 20080929
  Receipt Date: 20080811
  Transmission Date: 20090109
  Serious: No
  Sender: FDA-Public Use
  Company Number: US-BAUSCH-2008BL003506

PATIENT
  Age: 45 Year
  Sex: Male

DRUGS (1)
  1. ALAWAY [Suspect]
     Indication: EYE PRURITUS
     Route: 047
     Dates: start: 20080810, end: 20080810

REACTIONS (5)
  - EYE INFLAMMATION [None]
  - EYE IRRITATION [None]
  - INSOMNIA [None]
  - OCULAR DISCOMFORT [None]
  - PHOTOPHOBIA [None]
